FAERS Safety Report 4621185-8 (Version None)
Quarter: 2005Q1

REPORT INFORMATION
  Report Type: 
  Country: None (occurrence: None)
  Receive Date: 20050325
  Receipt Date: 20050314
  Transmission Date: 20050727
  Serious: Yes (Other)
  Sender: FDA-Public Use
  Company Number: 2005045237

PATIENT
  Age: 55 Year
  Sex: Male

DRUGS (3)
  1. XALATAN [Suspect]
     Indication: GLAUCOMA
     Dosage: OPHTHALMIC
     Route: 047
  2. COSOPT [Concomitant]
  3. BRIMONIDINE TARTRATE [Concomitant]

REACTIONS (1)
  - INTRAOCULAR PRESSURE INCREASED [None]
